FAERS Safety Report 6696863-X (Version None)
Quarter: 2010Q2

REPORT INFORMATION
  Report Type: 
  Country: None (occurrence: None)
  Receive Date: 20100426
  Receipt Date: 20100422
  Transmission Date: 20101027
  Serious: Yes (Other)
  Sender: FDA-Public Use
  Company Number: JP-MERCK-1004USA02941

PATIENT

DRUGS (1)
  1. SINGULAIR [Suspect]
     Route: 048
     Dates: start: 20080901

REACTIONS (1)
  - ALLERGIC GRANULOMATOUS ANGIITIS [None]
